FAERS Safety Report 15317844 (Version 2)
Quarter: 2018Q4

REPORT INFORMATION
  Report Type: Spontaneous
  Country: US (occurrence: US)
  Receive Date: 20180824
  Receipt Date: 20181026
  Transmission Date: 20190204
  Serious: Yes (Hospitalization, Other)
  Sender: FDA-Public Use
  Company Number: US-VIFOR (INTERNATIONAL) INC.-VIT-2018-08381

PATIENT
  Sex: Male

DRUGS (29)
  1. EDARBI [Concomitant]
     Active Substance: AZILSARTAN KAMEDOXOMIL
  2. METHYLPREDNISOLONE. [Concomitant]
     Active Substance: METHYLPREDNISOLONE
  3. LASIX [Concomitant]
     Active Substance: FUROSEMIDE
  4. ZETIA [Concomitant]
     Active Substance: EZETIMIBE
  5. HYDROCODONE-ACETAMINOPHEN [Concomitant]
     Active Substance: ACETAMINOPHEN\HYDROCODONE
  6. CALCIUM D [Concomitant]
     Active Substance: CALCIUM\VITAMIN D
  7. FLUCONAZOLE. [Concomitant]
     Active Substance: FLUCONAZOLE
  8. LEXAPRO [Concomitant]
     Active Substance: ESCITALOPRAM OXALATE
  9. COUMADIN [Concomitant]
     Active Substance: WARFARIN SODIUM
  10. VELTASSA [Suspect]
     Active Substance: PATIROMER
     Indication: HYPERKALAEMIA
     Route: 048
     Dates: start: 20161117
  11. ALLOPURINOL. [Concomitant]
     Active Substance: ALLOPURINOL
  12. MULTIVITAMINS [Concomitant]
     Active Substance: VITAMINS
  13. NEXIUM [Concomitant]
     Active Substance: ESOMEPRAZOLE MAGNESIUM
  14. TRAZODONE HYDROCHLORIDE. [Concomitant]
     Active Substance: TRAZODONE HYDROCHLORIDE
  15. LOSARTAN POTASSIUM. [Concomitant]
     Active Substance: LOSARTAN POTASSIUM
  16. DEPAKOTE [Concomitant]
     Active Substance: DIVALPROEX SODIUM
  17. COMBIGAN [Concomitant]
     Active Substance: BRIMONIDINE TARTRATE\TIMOLOL MALEATE
  18. DEPO-TESTOSTERONE [Concomitant]
     Active Substance: TESTOSTERONE CYPIONATE
  19. GABAPENTIN. [Concomitant]
     Active Substance: GABAPENTIN
  20. AMLODIPINE BESYLATE. [Concomitant]
     Active Substance: AMLODIPINE BESYLATE
  21. VITAMIN D [Concomitant]
     Active Substance: CHOLECALCIFEROL
  22. LEVEMIR [Concomitant]
     Active Substance: INSULIN DETEMIR
  23. MAGNESIUM OXIDE. [Concomitant]
     Active Substance: MAGNESIUM OXIDE
  24. VESICARE [Concomitant]
     Active Substance: SOLIFENACIN SUCCINATE
  25. HYDRALAZINE HCL [Concomitant]
     Active Substance: HYDRALAZINE HYDROCHLORIDE
  26. NOVOLOG [Concomitant]
     Active Substance: INSULIN ASPART
  27. XALATAN [Concomitant]
     Active Substance: LATANOPROST
  28. CALCIUM [Concomitant]
     Active Substance: CALCIUM
  29. TESSALON [Concomitant]
     Active Substance: BENZONATATE

REACTIONS (3)
  - Biopsy kidney [Unknown]
  - Product dose omission [Unknown]
  - Renal impairment [Not Recovered/Not Resolved]

NARRATIVE: CASE EVENT DATE: 2018
